FAERS Safety Report 4485105-1 (Version None)
Quarter: 2004Q4

REPORT INFORMATION
  Report Type: 
  Country: None (occurrence: None)
  Receive Date: 20041026
  Receipt Date: 20031013
  Transmission Date: 20050328
  Serious: No
  Sender: FDA-Public Use
  Company Number: US-BRISTOL-MYERS SQUIBB COMPANY-12409108

PATIENT
  Age: 55 Year
  Sex: Female
  Weight: 110 kg

DRUGS (8)
  1. GLUCOPHAGE XR [Suspect]
     Indication: POLYCYSTIC OVARIES
     Route: 048
     Dates: start: 20000101
  2. SYNTHROID [Concomitant]
  3. ESTRADIOL [Concomitant]
  4. TRAZODONE HCL [Concomitant]
  5. XANAX [Concomitant]
  6. LEXAPRO [Concomitant]
  7. MOBIC [Concomitant]
  8. PAIN MEDICATIONS [Concomitant]

REACTIONS (3)
  - DIARRHOEA [None]
  - STOOL ANALYSIS ABNORMAL [None]
  - WEIGHT INCREASED [None]
